FAERS Safety Report 12558327 (Version 2)
Quarter: 2016Q3

REPORT INFORMATION
  Report Type: Report from Study
  Country: CO (occurrence: CO)
  Receive Date: 20160714
  Receipt Date: 20160715
  Transmission Date: 20161109
  Serious: Yes (Death, Hospitalization)
  Sender: FDA-Public Use
  Company Number: CO-ABBVIE-16P-036-1676126-00

PATIENT
  Age: 38 Year
  Sex: Female

DRUGS (1)
  1. ZEMPLAR [Suspect]
     Active Substance: PARICALCITOL
     Indication: HYPERPARATHYROIDISM SECONDARY
     Dosage: POST DIALYSIS
     Route: 042
     Dates: start: 20160425, end: 20160616

REACTIONS (5)
  - Cardio-respiratory arrest [Fatal]
  - Spleen disorder [Fatal]
  - Abdominal pain [Fatal]
  - Coronary artery occlusion [Fatal]
  - Chest pain [Fatal]

NARRATIVE: CASE EVENT DATE: 20160615
